FAERS Safety Report 9786195 (Version 1)
Quarter: 2013Q4

REPORT INFORMATION
  Report Type: Spontaneous
  Country: US (occurrence: US)
  Receive Date: 20131227
  Receipt Date: 20131227
  Transmission Date: 20140711
  Serious: Yes (Other)
  Sender: FDA-Public Use
  Company Number: US-BRISTOL-MYERS SQUIBB COMPANY-19935261

PATIENT
  Sex: Female

DRUGS (2)
  1. BYETTA [Suspect]
     Dosage: LAST DOSE ON APR10
     Dates: start: 201001, end: 201004
  2. VICTOZA [Suspect]
     Dosage: LAST DOSE ON MAY13
     Dates: start: 201004, end: 201305

REACTIONS (1)
  - Thyroid cancer [Unknown]
